FAERS Safety Report 6191678-3 (Version None)
Quarter: 2009Q2

REPORT INFORMATION
  Report Type: 
  Country: None (occurrence: None)
  Receive Date: 20090515
  Receipt Date: 20090512
  Transmission Date: 20091009
  Serious: Yes (Death, Other)
  Sender: FDA-Public Use
  Company Number: PHHY2009BR18265

PATIENT
  Sex: Female

DRUGS (2)
  1. EXELON [Suspect]
     Indication: MEMORY IMPAIRMENT
     Route: 048
  2. EBIXA [Concomitant]

REACTIONS (4)
  - CORONARY ARTERY DISEASE [None]
  - DIARRHOEA [None]
  - OSTEITIS DEFORMANS [None]
  - WEIGHT DECREASED [None]
